FAERS Safety Report 9332078 (Version 2)
Quarter: 2013Q2

REPORT INFORMATION
  Report Type: Spontaneous
  Country: US (occurrence: US)
  Receive Date: 20130605
  Receipt Date: 20130627
  Transmission Date: 20140414
  Serious: Yes (Hospitalization, Disabling)
  Sender: FDA-Public Use
  Company Number: US-009507513-1306USA000413

PATIENT
  Sex: Male

DRUGS (3)
  1. PEGINTRON [Suspect]
     Indication: HEPATITIS C
     Dosage: 150 MICROGRAM, QW
     Route: 058
     Dates: start: 20130216
  2. VICTRELIS [Suspect]
     Indication: HEPATITIS C
     Dosage: UNK
     Dates: start: 20130316
  3. REBETOL [Suspect]
     Indication: HEPATITIS C
     Dosage: UNK
     Dates: start: 20130216

REACTIONS (4)
  - Anaemia [Recovered/Resolved]
  - Transfusion [Unknown]
  - Localised infection [Unknown]
  - Circumstance or information capable of leading to medication error [Unknown]
